FAERS Safety Report 7050910-4 (Version None)
Quarter: 2010Q4

REPORT INFORMATION
  Report Type: 
  Country: None (occurrence: None)
  Receive Date: 20101018
  Receipt Date: 20101018
  Transmission Date: 20110411
  Serious: No
  Sender: FDA-Public Use
  Company Number: None

PATIENT
  Age: 21 Year
  Sex: Female
  Weight: 64.4108 kg

DRUGS (1)
  1. OCELLA 3-0.03 TEVA [Suspect]
     Indication: DYSMENORRHOEA
     Dosage: ONE TAB QD PO
     Route: 048
     Dates: start: 20091207, end: 20100823

REACTIONS (3)
  - DRUG INEFFECTIVE [None]
  - METRORRHAGIA [None]
  - PRODUCT SUBSTITUTION ISSUE [None]
